FAERS Safety Report 5369445-X (Version None)
Quarter: 2007Q2

REPORT INFORMATION
  Report Type: 
  Country: None (occurrence: None)
  Receive Date: 20070625
  Receipt Date: 20070618
  Transmission Date: 20071010
  Serious: Yes (Life-Threatening)
  Sender: FDA-Public Use
  Company Number: US-PURDUE-USA_2007_0027944

PATIENT
  Sex: Male

DRUGS (4)
  1. OXYCONTIN [Suspect]
     Indication: PAIN
     Dosage: UNK MG, UNK
     Route: 048
  2. PERCOCET [Suspect]
     Indication: PAIN
     Dosage: UNK, UNK
  3. PREDNISONE TAB [Suspect]
     Indication: DRUG USE FOR UNKNOWN INDICATION
     Dosage: UNK, UNK
  4. ANTI-INFLAMMATORY [Suspect]
     Indication: TENDONITIS
     Dosage: UNK, UNK

REACTIONS (5)
  - CARDIAC ARREST [None]
  - PAIN [None]
  - RESPIRATORY ARREST [None]
  - TENDONITIS [None]
  - UPPER EXTREMITY MASS [None]
